FAERS Safety Report 4503001-8 (Version None)
Quarter: 2004Q4

REPORT INFORMATION
  Report Type: 
  Country: None (occurrence: None)
  Receive Date: 20041112
  Receipt Date: 20041021
  Transmission Date: 20050328
  Serious: Yes (Death, Hospitalization, Other)
  Sender: FDA-Public Use
  Company Number: 200466

PATIENT
  Age: 51 Year
  Sex: Female

DRUGS (14)
  1. AVONEX [Suspect]
     Indication: MULTIPLE SCLEROSIS
     Dosage: 30 MCG QW IM
     Route: 030
     Dates: start: 20021001, end: 20031001
  2. AVONEX [Suspect]
     Indication: MULTIPLE SCLEROSIS
     Dosage: 30 MCG QW IM
     Route: 030
     Dates: start: 20031001, end: 20040801
  3. DILANTIN [Concomitant]
  4. DECADRON [Concomitant]
  5. ZOLOFT [Concomitant]
  6. NEURONTIN [Concomitant]
  7. NEXIUM [Concomitant]
  8. MULTI-VITAMINS [Concomitant]
  9. OS-CAL D [Concomitant]
  10. FES04 [Concomitant]
  11. COLACE [Concomitant]
  12. VIOXX [Concomitant]
  13. MYCELEX [Concomitant]
  14. KEPPRA [Concomitant]

REACTIONS (17)
  - ATAXIA [None]
  - BRAIN OEDEMA [None]
  - BREAST CANCER METASTATIC [None]
  - CIRCULATORY COLLAPSE [None]
  - COGNITIVE DISORDER [None]
  - CONFUSIONAL STATE [None]
  - CONVULSION [None]
  - DYSARTHRIA [None]
  - FEELING ABNORMAL [None]
  - HEMIPARESIS [None]
  - HEPATIC LESION [None]
  - LUNG NEOPLASM [None]
  - MALIGNANT NEOPLASM PROGRESSION [None]
  - METASTASES TO CENTRAL NERVOUS SYSTEM [None]
  - METASTASES TO SPINE [None]
  - MYALGIA [None]
  - SPEECH DISORDER [None]
